FAERS Safety Report 18525524 (Version 1)
Quarter: 2020Q4

REPORT INFORMATION
  Report Type: Spontaneous
  Country: AT (occurrence: AT)
  Receive Date: 20201120
  Receipt Date: 20201120
  Transmission Date: 20210114
  Serious: Yes (Other)
  Sender: FDA-Public Use
  Company Number: AT-LUPIN PHARMACEUTICALS INC.-2020-09100

PATIENT
  Age: 7 Year
  Sex: Female

DRUGS (6)
  1. VANCOMYCIN [Suspect]
     Active Substance: VANCOMYCIN
     Indication: COVID-19
     Dosage: 40 MILLIGRAM/KILOGRAM, QD, TWO DOSES
     Route: 065
     Dates: start: 2020
  2. METHOTREXATE. [Concomitant]
     Active Substance: METHOTREXATE
     Indication: ACUTE LYMPHOCYTIC LEUKAEMIA
     Dosage: 20 MILLIGRAM/SQ. METER
     Route: 048
  3. GENTAMICIN. [Concomitant]
     Active Substance: GENTAMICIN
     Indication: COVID-19
     Dosage: 5 MILLIGRAM/KILOGRAM, QD
     Route: 065
     Dates: start: 2020
  4. ACYCLOVIR [ACICLOVIR] [Concomitant]
     Active Substance: ACYCLOVIR
     Indication: COVID-19
     Dosage: 30 MILLIGRAM/KILOGRAM, QD
     Route: 065
     Dates: start: 2020
  5. MEROPENEM. [Concomitant]
     Active Substance: MEROPENEM
     Indication: COVID-19
     Dosage: 60 MILLIGRAM/KILOGRAM, QD
     Route: 065
     Dates: start: 2020
  6. 6-MERCAPTOPURINE MONOHYDRATE [Concomitant]
     Active Substance: MERCAPTOPURINE
     Indication: ACUTE LYMPHOCYTIC LEUKAEMIA
     Dosage: 50 MILLIEQUIVALENT PER MILLILITRE, QD
     Route: 048

REACTIONS (1)
  - Off label use [Unknown]

NARRATIVE: CASE EVENT DATE: 2020
